FAERS Safety Report 17099761 (Version 2)
Quarter: 2020Q1

REPORT INFORMATION
  Report Type: Report from Study
  Country: US (occurrence: US)
  Receive Date: 20191202
  Receipt Date: 20200113
  Transmission Date: 20200409
  Serious: No
  Sender: FDA-Public Use
  Company Number: US-BEH-2019110014

PATIENT
  Age: 50 Year
  Sex: Female
  Weight: 75.28 kg

DRUGS (2)
  1. HAEGARDA [Suspect]
     Active Substance: HUMAN C1-ESTERASE INHIBITOR
     Indication: PROPHYLAXIS
     Dosage: (TWO 2000 IU) 4000 INTERNATIONAL UNIT, TOT
     Route: 058
     Dates: start: 201911, end: 201911
  2. HAEGARDA [Suspect]
     Active Substance: HUMAN C1-ESTERASE INHIBITOR
     Indication: HEREDITARY ANGIOEDEMA
     Dosage: 4500 INTERNATIONAL UNIT, BIW
     Route: 058
     Dates: start: 20190313

REACTIONS (4)
  - Product preparation issue [Unknown]
  - No adverse event [Unknown]
  - Device issue [Unknown]
  - Underdose [Unknown]

NARRATIVE: CASE EVENT DATE: 20191125
